FAERS Safety Report 22156682 (Version 2)
Quarter: 2024Q1

REPORT INFORMATION
  Report Type: Spontaneous
  Country: US (occurrence: US)
  Receive Date: 20230330
  Receipt Date: 20240205
  Transmission Date: 20240410
  Serious: Yes (Other)
  Sender: FDA-Public Use
  Company Number: US-SUN PHARMACEUTICAL INDUSTRIES LTD-2023R1-383174

PATIENT
  Age: 33 Year
  Sex: Male

DRUGS (3)
  1. IBUPROFEN [Suspect]
     Active Substance: IBUPROFEN
     Indication: Chest pain
     Dosage: UNK
     Route: 065
  2. COLCHICINE [Suspect]
     Active Substance: COLCHICINE
     Indication: Chest pain
     Dosage: UNK
     Route: 065
  3. COLCHICINE [Suspect]
     Active Substance: COLCHICINE

REACTIONS (1)
  - Drug ineffective [Unknown]
